FAERS Safety Report 10156429 (Version 1)
Quarter: 2014Q2

REPORT INFORMATION
  Report Type: Spontaneous
  Country: US (occurrence: None)
  Receive Date: 20140506
  Receipt Date: 20140506
  Transmission Date: 20141212
  Serious: Yes (Life-Threatening, Hospitalization, Disabling, Other)
  Sender: FDA-Public Use
  Company Number: None

PATIENT
  Age: 73 Year
  Sex: Male
  Weight: 292 kg

DRUGS (10)
  1. BYDUREON [Suspect]
     Indication: WEIGHT CONTROL
     Dosage: 1 VIAL; INJE/VIAL SUB-0 WEEKLY FOR 1 MONTH
     Dates: start: 20140105, end: 20140326
  2. AMIODARONE [Concomitant]
  3. AVODART [Concomitant]
  4. METOPROLOL [Concomitant]
  5. TAMSOLOSIN [Concomitant]
  6. ZOCOR [Concomitant]
  7. PLAVIX [Concomitant]
  8. DIOVAN [Concomitant]
  9. NOVOLOG [Concomitant]
  10. LEVEMIR [Concomitant]

REACTIONS (5)
  - Chest pain [None]
  - Hyperhidrosis [None]
  - Headache [None]
  - Heart rate increased [None]
  - Dizziness [None]
